FAERS Safety Report 11910016 (Version 1)
Quarter: 2016Q1

REPORT INFORMATION
  Report Type: Spontaneous
  Country: US (occurrence: None)
  Receive Date: 20160111
  Receipt Date: 20160111
  Transmission Date: 20160526
  Serious: Yes (Other)
  Sender: FDA-Public Use
  Company Number: None

PATIENT
  Age: 58 Year
  Sex: Female
  Weight: 71.22 kg

DRUGS (1)
  1. MIC 15/50/100MG/ML LIPOTROPICS [Suspect]
     Active Substance: CHOLINE\INOSITOL\METHIONINE
     Indication: WEIGHT CONTROL
     Route: 058
     Dates: start: 20151118, end: 20151124

REACTIONS (10)
  - Gastric disorder [None]
  - Product quality issue [None]
  - Somnolence [None]
  - Vomiting [None]
  - Discomfort [None]
  - Activities of daily living impaired [None]
  - Hyperacusis [None]
  - Mental disorder [None]
  - Ear discomfort [None]
  - No reaction on previous exposure to drug [None]
